FAERS Safety Report 10230845 (Version 1)
Quarter: 2014Q2

REPORT INFORMATION
  Report Type: Report from Study
  Country: US (occurrence: US)
  Receive Date: 20140611
  Receipt Date: 20140611
  Transmission Date: 20141212
  Serious: Yes (Other)
  Sender: FDA-Public Use
  Company Number: US-SA-2014SA072211

PATIENT
  Age: 87 Year
  Sex: Male

DRUGS (2)
  1. LANTUS SOLOSTAR [Suspect]
     Indication: PRODUCT USED FOR UNKNOWN INDICATION
     Dosage: DOSE: 18 UNITS IN MORNING AND 8 UNITS IN EVENING
     Route: 065
  2. SOLOSTAR [Concomitant]

REACTIONS (3)
  - Hand deformity [Unknown]
  - Asthma [Unknown]
  - Cough [Unknown]
